FAERS Safety Report 20386981 (Version 1)
Quarter: 2022Q1

REPORT INFORMATION
  Report Type: Spontaneous
  Country: US (occurrence: US)
  Receive Date: 20220127
  Receipt Date: 20220127
  Transmission Date: 20220423
  Serious: No
  Sender: FDA-Public Use
  Company Number: US-ALLERGAN-2117312US

PATIENT
  Age: 65 Year
  Sex: Female

DRUGS (1)
  1. BOTOX [Suspect]
     Active Substance: ONABOTULINUMTOXINA
     Indication: Migraine
     Dosage: UNK, SINGLE
     Dates: start: 20210419, end: 20210419

REACTIONS (3)
  - Condition aggravated [Recovering/Resolving]
  - Muscle tightness [Unknown]
  - Hypoacusis [Recovering/Resolving]

NARRATIVE: CASE EVENT DATE: 20210421
